FAERS Safety Report 25159436 (Version 1)
Quarter: 2025Q2

REPORT INFORMATION
  Report Type: Spontaneous
  Country: US (occurrence: US)
  Receive Date: 20250404
  Receipt Date: 20250404
  Transmission Date: 20250716
  Serious: No
  Sender: BRISTOL MYERS SQUIBB
  Company Number: US-BRISTOL-MYERS SQUIBB COMPANY-2025-050121

PATIENT
  Age: 61 Year
  Sex: Male

DRUGS (11)
  1. REVLIMID [Suspect]
     Active Substance: LENALIDOMIDE
     Indication: Plasma cell myeloma
     Route: 048
     Dates: start: 20201124
  2. AMLODIPINE [Concomitant]
     Active Substance: AMLODIPINE BESYLATE
  3. ASPIRIN [Concomitant]
     Active Substance: ASPIRIN
  4. AZITHROMYCIN [Concomitant]
     Active Substance: AZITHROMYCIN
  5. CELECOXIB [Concomitant]
     Active Substance: CELECOXIB
  6. COLACE [Concomitant]
     Active Substance: DOCUSATE SODIUM
  7. DICLOFENAC [Concomitant]
     Active Substance: DICLOFENAC
  8. DICLOFENAC [Concomitant]
     Active Substance: DICLOFENAC
  9. IBUPROFEN [Concomitant]
     Active Substance: IBUPROFEN
  10. DORZOLAMIDA + TIMOLOL [Concomitant]
  11. DORZOLAMIDA + TIMOLOL [Concomitant]

REACTIONS (1)
  - Paraesthesia [Unknown]

NARRATIVE: CASE EVENT DATE: 20250301
